FAERS Safety Report 6013473-8 (Version None)
Quarter: 2008Q4

REPORT INFORMATION
  Report Type: 
  Country: None (occurrence: None)
  Receive Date: 20081218
  Receipt Date: 20081218
  Transmission Date: 20090506
  Serious: Yes (Death)
  Sender: FDA-Public Use
  Company Number: None

PATIENT
  Age: 54 Year
  Sex: Male
  Weight: 77.1115 kg

DRUGS (2)
  1. NARCAN [Suspect]
     Dates: start: 20080615, end: 20080615
  2. PAVULON [Suspect]

REACTIONS (6)
  - ATRIAL FIBRILLATION [None]
  - BLOOD GLUCOSE INCREASED [None]
  - DISORIENTATION [None]
  - HEART RATE INCREASED [None]
  - MIOSIS [None]
  - UNEVALUABLE EVENT [None]
